FAERS Safety Report 12677913 (Version 1)
Quarter: 2016Q3

REPORT INFORMATION
  Report Type: Spontaneous
  Country: US (occurrence: US)
  Receive Date: 20160823
  Receipt Date: 20160823
  Transmission Date: 20161109
  Serious: No
  Sender: FDA-Public Use
  Company Number: US-TARO-2016TAR00544

PATIENT
  Age: 86 Year
  Sex: Female
  Weight: 53.29 kg

DRUGS (6)
  1. WARFARIN SODIUM TABLETS USP 2.5MG [Suspect]
     Active Substance: WARFARIN SODIUM
     Dosage: 2.5 MG, 3X/WEEK
     Route: 048
     Dates: start: 201512, end: 20160606
  2. TIMOLOL. [Concomitant]
     Active Substance: TIMOLOL
  3. AMIODARONE HCL TABLET [Concomitant]
  4. WARFARIN SODIUM TABLETS USP 2.5MG [Suspect]
     Active Substance: WARFARIN SODIUM
     Dosage: 1.25 MG, 4X/WEEK
     Route: 048
     Dates: start: 201512, end: 20160606
  5. FUROSEMIDE. [Concomitant]
     Active Substance: FUROSEMIDE
     Dosage: UNK
     Dates: start: 2013
  6. WARFARIN SODIUM TABLETS USP 2.5MG [Suspect]
     Active Substance: WARFARIN SODIUM
     Dosage: 12.5 UNK, 1X/DAY
     Route: 048
     Dates: start: 20160610

REACTIONS (8)
  - International normalised ratio increased [Unknown]
  - Fall [Recovered/Resolved]
  - Balance disorder [Not Recovered/Not Resolved]
  - Contusion [Unknown]
  - Back pain [Not Recovered/Not Resolved]
  - Blood blister [Recovering/Resolving]
  - Muscle contusion [Unknown]
  - Bone contusion [Unknown]

NARRATIVE: CASE EVENT DATE: 2015
